FAERS Safety Report 14078357 (Version 5)
Quarter: 2018Q3

REPORT INFORMATION
  Report Type: Spontaneous
  Country: US (occurrence: US)
  Receive Date: 20171012
  Receipt Date: 20180824
  Transmission Date: 20181010
  Serious: No
  Sender: FDA-Public Use
  Company Number: US-PFIZER INC-2017234512

PATIENT
  Age: 61 Year
  Sex: Female

DRUGS (5)
  1. IBRANCE [Suspect]
     Active Substance: PALBOCICLIB
     Indication: BREAST CANCER FEMALE
     Dosage: 100 MG, CYCLIC
     Route: 048
     Dates: start: 201803
  2. IBRANCE [Suspect]
     Active Substance: PALBOCICLIB
     Indication: NEOPLASM MALIGNANT
     Dosage: 100 MG, CYCLIC (FOR 21 DAYS EVERY 28 DAYS CYCLE)(DAILY FOR 21 DAYS ON THEN 10 DAYS OFF)
     Route: 048
     Dates: start: 201704
  3. VICODIN [Concomitant]
     Active Substance: ACETAMINOPHEN\HYDROCODONE BITARTRATE
     Indication: METASTASES TO BONE
  4. VICODIN [Concomitant]
     Active Substance: ACETAMINOPHEN\HYDROCODONE BITARTRATE
     Indication: PAIN
     Dosage: UNK
  5. LETROZOLE. [Suspect]
     Active Substance: LETROZOLE
     Dosage: UNK

REACTIONS (20)
  - Nausea [Not Recovered/Not Resolved]
  - Memory impairment [Unknown]
  - Diarrhoea [Unknown]
  - Headache [Unknown]
  - Fatigue [Unknown]
  - Depression [Unknown]
  - Vertigo [Unknown]
  - Neoplasm progression [Unknown]
  - Mood swings [Unknown]
  - Vomiting [Unknown]
  - Stomatitis [Unknown]
  - Dry skin [Unknown]
  - Drug dose omission [Unknown]
  - Skin odour abnormal [Unknown]
  - Dysgeusia [Unknown]
  - Anxiety [Unknown]
  - Rash [Not Recovered/Not Resolved]
  - Pruritus [Not Recovered/Not Resolved]
  - Oral herpes [Not Recovered/Not Resolved]
  - Stress [Unknown]

NARRATIVE: CASE EVENT DATE: 2017
